FAERS Safety Report 23432769 (Version 1)
Quarter: 2024Q1

REPORT INFORMATION
  Report Type: Spontaneous
  Country: None (occurrence: FR)
  Receive Date: 20240123
  Receipt Date: 20240123
  Transmission Date: 20240410
  Serious: Yes (Other)
  Sender: FDA-Public Use
  Company Number: FR-B.Braun Medical Inc.-2151859

PATIENT
  Age: 69 Year
  Sex: Male
  Weight: 126 kg

DRUGS (8)
  1. HEPARIN SODIUM IN DEXTROSE [Suspect]
     Active Substance: HEPARIN SODIUM
     Indication: Atrial fibrillation
     Dates: start: 20230608, end: 20230615
  2. CLINDAMYCIN HYDROCHLORIDE [Suspect]
     Active Substance: CLINDAMYCIN HYDROCHLORIDE
  3. FUROSEMIDE [Suspect]
     Active Substance: FUROSEMIDE
  4. BISOPROLOL. [Concomitant]
     Active Substance: BISOPROLOL FUMARATE
  5. INNOVAIR [Concomitant]
     Active Substance: BECLOMETHASONE DIPROPIONATE\FORMOTEROL
  6. MAGNESIUM [Concomitant]
     Active Substance: MAGNESIUM
  7. ACETAMINOPHEN [Concomitant]
     Active Substance: ACETAMINOPHEN
  8. SPIRIVA [Concomitant]
     Active Substance: TIOTROPIUM BROMIDE MONOHYDRATE

REACTIONS (1)
  - Acute generalised exanthematous pustulosis [None]
